FAERS Safety Report 23152678 (Version 1)
Quarter: 2023Q4

REPORT INFORMATION
  Report Type: Spontaneous
  Country: US (occurrence: US)
  Receive Date: 20231107
  Receipt Date: 20231107
  Transmission Date: 20240109
  Serious: Yes (Other)
  Sender: FDA-Public Use
  Company Number: US-AMGEN-USASP2023195865

PATIENT
  Age: 62 Year
  Sex: Male

DRUGS (1)
  1. TAVNEOS [Suspect]
     Active Substance: AVACOPAN
     Indication: Microscopic polyangiitis
     Dosage: 30 MILLIGRAM, BID (TAKE 3 CAPSULES (30 MG) BY MOUTH WICE DAILY)
     Route: 048

REACTIONS (4)
  - Gastrooesophageal reflux disease [Unknown]
  - Oesophageal pain [Unknown]
  - Nausea [Unknown]
  - Abdominal pain upper [Unknown]
